FAERS Safety Report 23058744 (Version 1)
Quarter: 2023Q4

REPORT INFORMATION
  Report Type: Spontaneous
  Country: US (occurrence: US)
  Receive Date: 20231012
  Receipt Date: 20231012
  Transmission Date: 20240110
  Serious: Yes (Hospitalization)
  Sender: FDA-Public Use
  Company Number: US-RECKITT BENCKISER HEALTHCARE INT LIMITED-RB-109165-2023

PATIENT
  Age: 72 Year
  Sex: Female

DRUGS (3)
  1. OXYCODONE HYDROCHLORIDE\OXYCODONE TEREPHTHALATE [Suspect]
     Active Substance: OXYCODONE HYDROCHLORIDE\OXYCODONE TEREPHTHALATE
     Indication: Product used for unknown indication
     Dosage: UNK, (2 TO 4 SPRAYS)
     Route: 045
  2. PROPOFOL [Suspect]
     Active Substance: PROPOFOL
     Indication: Product used for unknown indication
     Dosage: 150 MILLIGRAM, UNK
     Route: 065
  3. LACTATED RINGERS SOLUTION [Suspect]
     Active Substance: CALCIUM CHLORIDE\POTASSIUM CHLORIDE\SODIUM CHLORIDE\SODIUM LACTATE
     Indication: Product used for unknown indication
     Dosage: UNK
     Route: 065

REACTIONS (7)
  - Pulmonary oedema [Recovered/Resolved]
  - Pulmonary congestion [Recovered/Resolved]
  - Hypoxia [Recovered/Resolved]
  - Sinus bradycardia [Recovered/Resolved]
  - Blood pressure increased [Recovered/Resolved]
  - Troponin increased [Recovered/Resolved]
  - Brain natriuretic peptide increased [Recovered/Resolved]
